FAERS Safety Report 23558151 (Version 4)
Quarter: 2024Q3

REPORT INFORMATION
  Report Type: Other
  Country: US (occurrence: US)
  Receive Date: 20240223
  Receipt Date: 20240822
  Transmission Date: 20241017
  Serious: No
  Sender: TRAVERE THERAPEUTICS
  Company Number: US-TRAVERE-2024TVT00167

PATIENT
  Age: 61 Year
  Sex: Male

DRUGS (2)
  1. FILSPARI [Suspect]
     Active Substance: SPARSENTAN
     Indication: IgA nephropathy
     Route: 048
     Dates: start: 20240210
  2. FILSPARI [Suspect]
     Active Substance: SPARSENTAN
     Route: 048
     Dates: start: 20240225

REACTIONS (10)
  - Somnolence [Unknown]
  - Fatigue [Unknown]
  - Blood pressure decreased [Unknown]
  - Hypertension [Unknown]
  - Product distribution issue [Unknown]
  - Tinnitus [Unknown]
  - Peripheral swelling [Unknown]
  - Cough [Unknown]
  - Hypersensitivity [Unknown]
  - Blood creatinine increased [Unknown]
